FAERS Safety Report 4433813-0 (Version None)
Quarter: 2004Q3

REPORT INFORMATION
  Report Type: 
  Country: None (occurrence: None)
  Receive Date: 20040825
  Receipt Date: 20040811
  Transmission Date: 20050211
  Serious: Yes (Death)
  Sender: FDA-Public Use
  Company Number: MK200408-0126-1

PATIENT
  Age: 57 Year
  Sex: Male

DRUGS (5)
  1. ANAFRANIL [Suspect]
     Dosage: 75MG, DAILY
     Dates: start: 20000603, end: 20000611
  2. ZYPREXA [Suspect]
     Dates: start: 20000603, end: 20000611
  3. TERALITHE [Suspect]
     Dates: start: 20000603, end: 20000611
  4. NOZINAN [Suspect]
     Dates: start: 20000603, end: 20000611
  5. LEPTICUR [Concomitant]
     Dates: start: 20000603, end: 20000611

REACTIONS (18)
  - AFFECTIVE DISORDER [None]
  - BLOOD CALCIUM DECREASED [None]
  - BLOOD CHLORIDE INCREASED [None]
  - BLOOD CREATININE INCREASED [None]
  - BLOOD SODIUM INCREASED [None]
  - BLOOD UREA INCREASED [None]
  - CARDIAC DISORDER [None]
  - GENERAL PHYSICAL HEALTH DETERIORATION [None]
  - HEART RATE INCREASED [None]
  - MITRAL VALVE PROLAPSE [None]
  - NEUROLEPTIC MALIGNANT SYNDROME [None]
  - PERICARDIAL EFFUSION [None]
  - PYREXIA [None]
  - RESPIRATORY TRACT CONGESTION [None]
  - SUDDEN DEATH [None]
  - TORTICOLLIS [None]
  - VENTRICULAR ARRHYTHMIA [None]
  - VENTRICULAR HYPERTROPHY [None]
